FAERS Safety Report 5774895-3 (Version None)
Quarter: 2008Q2

REPORT INFORMATION
  Report Type: 
  Country: None (occurrence: None)
  Receive Date: 20080617
  Receipt Date: 20080613
  Transmission Date: 20081010
  Serious: Yes (Death, Hospitalization, Other)
  Sender: FDA-Public Use
  Company Number: ZW-BOEHRINGER INGELHEIM GMBH, GERMANY-2007-BP-25224BP

PATIENT
  Age: 39 Year
  Sex: Female
  Weight: 45 kg

DRUGS (10)
  1. VIRAMUNE [Suspect]
     Indication: HIV INFECTION
     Route: 048
     Dates: start: 20071108, end: 20080522
  2. TENOFOVIR DISOPROXIL FUMARATE [Suspect]
     Indication: HIV INFECTION
     Route: 048
     Dates: start: 20071108, end: 20071122
  3. EMTRICITABINE [Suspect]
     Indication: HIV INFECTION
     Route: 048
     Dates: start: 20071108, end: 20080522
  4. DIDANOSINE [Suspect]
     Indication: HIV INFECTION
     Route: 048
     Dates: start: 20071217, end: 20080522
  5. COTRIM [Concomitant]
  6. PREDNISOLONE [Concomitant]
  7. CIPROFLOXACIN [Concomitant]
  8. IRON SULFATETHIAMIN COMPOUND TAB [Concomitant]
  9. CEFTRIAXONE [Concomitant]
  10. METOCLOPRAMIDE [Concomitant]

REACTIONS (5)
  - ANAEMIA [None]
  - DEATH [None]
  - FANCONI SYNDROME ACQUIRED [None]
  - GASTROENTERITIS [None]
  - HEADACHE [None]
